FAERS Safety Report 20772832 (Version 2)
Quarter: 2022Q2

REPORT INFORMATION
  Report Type: Report from Study
  Country: PL (occurrence: PL)
  Receive Date: 20220502
  Receipt Date: 20220503
  Transmission Date: 20220720
  Serious: Yes (Hospitalization, Other)
  Sender: FDA-Public Use
  Company Number: PL-CELGENE-POL-20220105965

PATIENT
  Age: 65 Year
  Sex: Female
  Weight: 74 kg

DRUGS (12)
  1. AZACITIDINE [Suspect]
     Active Substance: AZACITIDINE
     Indication: Myelodysplastic syndrome
     Dosage: 75 MG/M2?ON DAYS 1-9 PER CYCLE
     Route: 058
     Dates: start: 20210816, end: 20211103
  2. AZACITIDINE [Suspect]
     Active Substance: AZACITIDINE
     Dosage: ON DAYS 1-9 PER CYCLE?RE-STARTED
     Route: 058
     Dates: start: 20220110
  3. VENETOCLAX [Suspect]
     Active Substance: VENETOCLAX
     Indication: Myelodysplastic syndrome
     Dosage: FREQUENCY TEXT: NOT PROVIDED
     Route: 065
  4. VENETOCLAX [Suspect]
     Active Substance: VENETOCLAX
     Dosage: RE-STARTED
  5. ESOMEPRAZOLE MAGNESIUM [Concomitant]
     Active Substance: ESOMEPRAZOLE MAGNESIUM
     Indication: Gastritis
     Route: 048
     Dates: start: 2021
  6. PREGABALIN [Concomitant]
     Active Substance: PREGABALIN
     Indication: Back pain
     Route: 048
     Dates: start: 2021
  7. PRIDINOL MESILATE [Concomitant]
     Active Substance: PRIDINOL MESILATE
     Indication: Back pain
     Dosage: 1 IN 1 D
     Route: 048
     Dates: start: 2021
  8. DULOFOR [Concomitant]
     Indication: Neurotic disorder of childhood
     Dosage: 2 IN 1 D
     Route: 048
     Dates: start: 2021
  9. TRAZODONE HYDROCHLORIDE [Concomitant]
     Active Substance: TRAZODONE HYDROCHLORIDE
     Indication: Neurotic disorder of childhood
     Route: 048
     Dates: start: 2021
  10. NEBIVOLOL HYDROCHLORIDE [Concomitant]
     Active Substance: NEBIVOLOL HYDROCHLORIDE
     Indication: Myocardial ischaemia
     Route: 048
     Dates: start: 20210101, end: 20211123
  11. EUTHYROX [Concomitant]
     Active Substance: LEVOTHYROXINE SODIUM
     Indication: Thyroid disorder
     Route: 048
     Dates: start: 2021
  12. ZOFRAN [Concomitant]
     Active Substance: ONDANSETRON HYDROCHLORIDE
     Indication: Prophylaxis of nausea and vomiting
     Dosage: 1 AS REQUIRED
     Route: 048
     Dates: start: 20210816

REACTIONS (2)
  - Femur fracture [Recovered/Resolved]
  - COVID-19 pneumonia [Recovered/Resolved]

NARRATIVE: CASE EVENT DATE: 20211114
